FAERS Safety Report 9338301 (Version 2)
Quarter: 2013Q4

REPORT INFORMATION
  Report Type: Spontaneous
  Country: AU (occurrence: AU)
  Receive Date: 20130610
  Receipt Date: 20131210
  Transmission Date: 20140711
  Serious: Yes (Life-Threatening)
  Sender: FDA-Public Use
  Company Number: AU-ASTRAZENECA-2013SE19751

PATIENT
  Age: 15 Year
  Sex: Male
  Weight: 50 kg

DRUGS (2)
  1. SYMBICORT [Suspect]
     Dosage: 200/6 TWO PUFFS, TWICE A DAY
     Route: 055
  2. VENTOLIN [Suspect]
     Dosage: 3-4 DOSES
     Route: 055

REACTIONS (2)
  - Dyspnoea [Recovering/Resolving]
  - Hypopnoea [Recovering/Resolving]
